FAERS Safety Report 7986135-5 (Version None)
Quarter: 2011Q4

REPORT INFORMATION
  Report Type: 
  Country: None (occurrence: None)
  Receive Date: 20111216
  Receipt Date: 20111206
  Transmission Date: 20120403
  Serious: Yes (Hospitalization)
  Sender: FDA-Public Use
  Company Number: US-BAYER-201037539NA

PATIENT
  Age: 20 Year
  Sex: Female
  Weight: 95.238 kg

DRUGS (13)
  1. ACETAMINOPHEN [Concomitant]
     Indication: PYREXIA
     Dosage: 650MG/325MG TAB (2 TABS)
     Route: 048
     Dates: start: 20030731
  2. ASPIRIN [Concomitant]
     Indication: PRODUCT USED FOR UNKNOWN INDICATION
  3. COUMADIN [Concomitant]
     Indication: PRODUCT USED FOR UNKNOWN INDICATION
     Dosage: 1 TAB Q DAY
     Route: 048
     Dates: start: 20030731
  4. OXYCODONE HCL [Concomitant]
     Indication: PRODUCT USED FOR UNKNOWN INDICATION
     Dosage: 10 MGM TAB / 2 TAB
     Route: 048
     Dates: start: 20030730
  5. OXYGEN [Concomitant]
     Indication: PRODUCT USED FOR UNKNOWN INDICATION
     Dosage: 2 L/MIN PER NASAL CANULA
     Route: 045
  6. YASMIN [Suspect]
     Indication: ACNE
     Dosage: UNK
     Route: 048
     Dates: start: 20020101, end: 20030101
  7. AFRIN ALLERGY [Concomitant]
     Indication: HEADACHE
     Dosage: UNK
     Dates: start: 20030803
  8. VITAMIN K1 [Concomitant]
     Dosage: 1 MG
     Route: 058
     Dates: start: 20030802
  9. HEPARIN [Concomitant]
     Indication: PRODUCT USED FOR UNKNOWN INDICATION
  10. CLINDAMYCIN [Concomitant]
     Indication: PRODUCT USED FOR UNKNOWN INDICATION
     Dosage: 900MGM/50ML Q8HRS
     Route: 042
     Dates: start: 20030803, end: 20030902
  11. MORPHINE [Concomitant]
     Indication: PAIN
     Dosage: 3 MGM PRN
     Route: 042
     Dates: start: 20030729
  12. ZANTAC [Concomitant]
     Indication: PRODUCT USED FOR UNKNOWN INDICATION
     Dosage: 150 MG / 1 TAB
     Route: 048
     Dates: start: 20030730
  13. LEVAQUIN [Concomitant]
     Indication: PRODUCT USED FOR UNKNOWN INDICATION
     Dosage: 500 MG Q24HRS
     Route: 042
     Dates: start: 20030806

REACTIONS (6)
  - INJURY [None]
  - PAIN [None]
  - PULMONARY EMBOLISM [None]
  - PULMONARY INFARCTION [None]
  - CHEST PAIN [None]
  - PYREXIA [None]
